FAERS Safety Report 13819820 (Version 5)
Quarter: 2019Q4

REPORT INFORMATION
  Report Type: Report from Study
  Country: US (occurrence: US)
  Receive Date: 20170801
  Receipt Date: 20191114
  Transmission Date: 20200122
  Serious: Yes (Hospitalization, Other)
  Sender: FDA-Public Use
  Company Number: US-INCYTE CORPORATION-2017IN006005

PATIENT

DRUGS (8)
  1. ACYCLOVIR                          /00587301/ [Concomitant]
     Active Substance: ACYCLOVIR
     Indication: ORAL HERPES
     Dosage: 400 MILLIGRAM, BID
     Route: 065
     Dates: start: 20131217
  2. GUANFACINE. [Concomitant]
     Active Substance: GUANFACINE
     Indication: HYPERTENSION
     Dosage: 1 MILLIGRAM, QD
     Route: 065
     Dates: start: 20121121
  3. JAKAFI [Suspect]
     Active Substance: RUXOLITINIB
     Indication: POLYCYTHAEMIA VERA
     Dosage: 5 MG, BID
     Route: 048
     Dates: start: 201506
  4. JAKAFI [Suspect]
     Active Substance: RUXOLITINIB
     Dosage: 5 MILLIGRAM, BID
     Route: 048
     Dates: start: 20160922
  5. JAKAFI [Suspect]
     Active Substance: RUXOLITINIB
     Dosage: 5 MILLIGRAM, BID
     Route: 048
     Dates: start: 20170519
  6. ENALAPRIL [Concomitant]
     Active Substance: ENALAPRIL
     Indication: HYPERTENSION
     Dosage: 10 MILLIGRAM, QD
     Route: 065
     Dates: start: 20110713
  7. AMLODIPINE [Concomitant]
     Active Substance: AMLODIPINE BESYLATE
     Indication: HYPERTENSION
     Dosage: 5 MILLIGRAM, BID
     Route: 065
     Dates: start: 2011, end: 20181126
  8. MONTELUKAST [Concomitant]
     Active Substance: MONTELUKAST SODIUM
     Indication: BRONCHITIS
     Dosage: 10 MILLIGRAM, QD
     Route: 065
     Dates: start: 2013

REACTIONS (1)
  - Lung carcinoma cell type unspecified stage I [Recovered/Resolved]

NARRATIVE: CASE EVENT DATE: 20170725
